FAERS Safety Report 15707863 (Version 1)
Quarter: 2018Q4

REPORT INFORMATION
  Report Type: Spontaneous
  Country: SE (occurrence: SE)
  Receive Date: 20181211
  Receipt Date: 20181211
  Transmission Date: 20190205
  Serious: Yes (Disabling, Other)
  Sender: FDA-Public Use
  Company Number: SE-TEVA-2018-SE-984410

PATIENT
  Age: 54 Year
  Sex: Male

DRUGS (2)
  1. DIMOR 2 MG FILMDRAGERAD TABLETT [Suspect]
     Active Substance: LOPERAMIDE HYDROCHLORIDE
     Indication: ENTEROSTOMY
     Dosage: PRESCRIBED LOPERAMIDE MYLAN/DIMOR 8 DAY/VB, ORAL 12-14 DAILY/VB.
     Route: 048
  2. LOPERAMID MYLAN 2 MG KAPSEL, H?RD [Suspect]
     Active Substance: LOPERAMIDE HYDROCHLORIDE
     Indication: ENTEROSTOMY
     Dosage: PRESCRIBED LOPERAMIDE MYLAN/DIMOR 8 DAY/VB, ORAL 12-14 DAILY/VB.
     Route: 048

REACTIONS (3)
  - Atrial fibrillation [Recovered/Resolved]
  - Dry eye [Unknown]
  - Mucosal erosion [Unknown]

NARRATIVE: CASE EVENT DATE: 2018
